FAERS Safety Report 7988682-9 (Version None)
Quarter: 2011Q4

REPORT INFORMATION
  Report Type: 
  Country: None (occurrence: None)
  Receive Date: 20111218
  Receipt Date: 20111206
  Transmission Date: 20120403
  Serious: Yes (Other)
  Sender: FDA-Public Use
  Company Number: US-ELI_LILLY_AND_COMPANY-US201112002856

PATIENT
  Age: 47 Year
  Sex: Female

DRUGS (3)
  1. CYMBALTA [Suspect]
     Dosage: UNK
     Dates: start: 20111016
  2. METHOTREXATE [Concomitant]
  3. CYMBALTA [Suspect]
     Indication: FIBROMYALGIA
     Dosage: 60 MG, QD
     Dates: start: 20070101

REACTIONS (3)
  - VOMITING [None]
  - SYSTEMIC LUPUS ERYTHEMATOSUS [None]
  - FATIGUE [None]
